FAERS Safety Report 5285671-2 (Version None)
Quarter: 2007Q1

REPORT INFORMATION
  Report Type: 
  Country: None (occurrence: None)
  Receive Date: 20070126
  Receipt Date: 20061215
  Transmission Date: 20070707
  Serious: No
  Sender: FDA-Public Use
  Company Number: 012744

PATIENT
  Sex: Male

DRUGS (3)
  1. PRIALT [Suspect]
     Indication: PAIN
     Dosage: ONCE/HOUR, INTRATHECAL
     Route: 037
  2. FENTANYL [Concomitant]
  3. DILAUDID [Concomitant]

REACTIONS (4)
  - DELUSION [None]
  - FEELING HOT [None]
  - HALLUCINATION [None]
  - MUSCLE SPASMS [None]
